FAERS Safety Report 5658535-X (Version None)
Quarter: 2008Q1

REPORT INFORMATION
  Report Type: 
  Country: None (occurrence: None)
  Receive Date: 20080310
  Receipt Date: 20070419
  Transmission Date: 20080703
  Serious: No
  Sender: FDA-Public Use
  Company Number: US-BAYER-200710735BCC

PATIENT
  Age: 79 Year
  Sex: Female
  Weight: 59 kg

DRUGS (5)
  1. ALEVE [Suspect]
     Indication: TINNITUS
     Dosage: TOTAL DAILY DOSE: 880 MG  UNIT DOSE: 220 MG
     Route: 048
     Dates: start: 20070306
  2. TYLENOL (CAPLET) [Suspect]
     Indication: TINNITUS
     Dates: start: 20070306
  3. VYTORIN [Concomitant]
  4. LISINOPRIL [Concomitant]
  5. CELEXA [Concomitant]

REACTIONS (2)
  - DEHYDRATION [None]
  - MICTURITION FREQUENCY DECREASED [None]
